FAERS Safety Report 25786254 (Version 1)
Quarter: 2025Q3

REPORT INFORMATION
  Report Type: Spontaneous
  Country: EU (occurrence: None)
  Receive Date: 20250910
  Receipt Date: 20250910
  Transmission Date: 20251020
  Serious: Yes (Hospitalization)
  Sender: B. BRAUN MEDICAL INC.
  Company Number: None

PATIENT
  Age: 27 Year
  Sex: Female
  Weight: 52 kg

DRUGS (21)
  1. METRONIDAZOLE [Suspect]
     Active Substance: METRONIDAZOLE
     Indication: Lymphadenitis
     Dates: start: 20250404, end: 20250408
  2. CEFOTAXIME SODIUM [Suspect]
     Active Substance: CEFOTAXIME SODIUM
     Indication: Lymphadenitis
     Dates: start: 20250404, end: 20250408
  3. ENOXAPARIN SODIUM [Concomitant]
     Active Substance: ENOXAPARIN SODIUM
  4. BIKTARVY 50 mg/200 mg/25 mg, comprim? pellicul? [Concomitant]
  5. FLUCONAZOLE [Concomitant]
     Active Substance: FLUCONAZOLE
  6. PREDNISOLONE [Concomitant]
     Active Substance: PREDNISOLONE
  7. HYDROXYCHLOROQUINE SULFATE [Concomitant]
     Active Substance: HYDROXYCHLOROQUINE SULFATE
  8. BETAMETHASONE [Concomitant]
     Active Substance: BETAMETHASONE
  9. DESLORATADINE [Concomitant]
     Active Substance: DESLORATADINE
  10. DAPAGLIFLOZIN [Concomitant]
     Active Substance: DAPAGLIFLOZIN
  11. RAMIPRIL [Concomitant]
     Active Substance: RAMIPRIL
  12. SKENAN [Concomitant]
     Active Substance: MORPHINE SULFATE
  13. MORPHINE SULFATE [Concomitant]
     Active Substance: MORPHINE SULFATE
  14. ACETAMINOPHEN [Concomitant]
     Active Substance: ACETAMINOPHEN
  15. NEFOPAM PANPHARMA 30 mg, comprim? pellicul? [Concomitant]
  16. OXAZEPAM [Concomitant]
     Active Substance: OXAZEPAM
  17. ONDANSETRON HYDROCHLORIDE [Concomitant]
     Active Substance: ONDANSETRON HYDROCHLORIDE
  18. LANSOPRAZOLE [Concomitant]
     Active Substance: LANSOPRAZOLE
  19. MACROGOL 10 000 [Concomitant]
  20. RETINOL [Concomitant]
     Active Substance: RETINOL
  21. CELLUVISC 4 mg/0,4 ml, collyre en r?cipient unidose [Concomitant]

REACTIONS (1)
  - Agranulocytosis [Recovered/Resolved]

NARRATIVE: CASE EVENT DATE: 20250408
